FAERS Safety Report 5441544-3 (Version None)
Quarter: 2007Q3

REPORT INFORMATION
  Report Type: 
  Country: None (occurrence: None)
  Receive Date: 20070904
  Receipt Date: 20070823
  Transmission Date: 20080115
  Serious: Yes (Hospitalization)
  Sender: FDA-Public Use
  Company Number: JP-BRISTOL-MYERS SQUIBB COMPANY-13045745

PATIENT
  Age: 73 Year
  Sex: Male

DRUGS (21)
  1. ZERIT [Suspect]
     Indication: HIV INFECTION
     Dosage: STOPPED ON 20-APR-2004 AND RESTARTED ON 15-AUG-2005 TO UNKNOWN, DOSE 80 MG/DAY.
     Route: 048
     Dates: start: 20040417
  2. VIDEX EC [Suspect]
     Indication: HIV INFECTION
     Dosage: DISCONTINUED ON 26-MAY-2005
     Route: 048
     Dates: start: 20041206, end: 20050526
  3. STOCRIN [Suspect]
     Indication: HIV INFECTION
     Dosage: 4/1/04 TO 6/14/04, 7/8/04 TO 8/12/04
     Route: 048
     Dates: start: 20040304, end: 20040812
  4. REYATAZ [Suspect]
     Indication: HIV INFECTION
     Dosage: DOSE DECREASED ON 01-APR-05 TO 300 MG/DAY,DISCONTINUED ON 26-MAY-2005
     Route: 048
     Dates: start: 20041206, end: 20050526
  5. EPIVIR [Suspect]
     Indication: HIV INFECTION
     Dosage: INTERRUPTED ON 14-JUN-2004, RESTARTED 08-JUL-2005, DISCONTINUED 12-AUG-2004,RESTARTED ON 15-AUG-2005
     Route: 048
     Dates: start: 20040417
  6. COMBIVIR [Suspect]
     Indication: HIV INFECTION
     Route: 048
     Dates: start: 20040304, end: 20040416
  7. NORVIR [Suspect]
     Indication: HIV INFECTION
     Dosage: DISCONTINUED ON 26-MAY-2005
     Route: 048
     Dates: start: 20041224, end: 20050526
  8. TENOFOVIR DISOPROXIL FUMARATE [Suspect]
     Indication: HIV INFECTION
     Dosage: INTERRUPTED ON 12-AUG-2004, RESTARTED ON 06-DEC-2004,DISCONTINUED ON 26-MAY-2005
     Route: 048
     Dates: start: 20040708, end: 20050526
  9. ZIAGEN [Suspect]
     Indication: HIV INFECTION
     Route: 048
     Dates: start: 20040421, end: 20040614
  10. KALETRA [Suspect]
     Indication: HIV INFECTION
     Dosage: LOPINAVIR-RITONAVIR WAS INITIATED ON 15-AUG-2005
     Route: 048
     Dates: start: 20050815
  11. AMOBAN [Concomitant]
     Route: 048
     Dates: start: 20040715
  12. INTEBAN [Concomitant]
     Route: 048
     Dates: start: 20040902
  13. URSO 250 [Concomitant]
  14. LOXONIN [Concomitant]
     Route: 048
     Dates: start: 20040401
  15. LENDORMIN [Concomitant]
     Route: 048
     Dates: start: 20040401
  16. TRYPTANOL [Concomitant]
     Route: 048
     Dates: start: 20040401, end: 20040420
  17. POLARAMINE [Concomitant]
     Route: 048
     Dates: start: 20050926, end: 20051013
  18. LOPEMIN [Concomitant]
     Route: 048
     Dates: start: 20050822
  19. AUGMENTIN '125' [Concomitant]
     Route: 048
     Dates: start: 20050926, end: 20051031
  20. ALDACTONE [Concomitant]
     Route: 048
     Dates: start: 20051013, end: 20051204
  21. LASIX [Concomitant]
     Route: 048
     Dates: start: 20051013

REACTIONS (2)
  - HYPOAESTHESIA [None]
  - LIVER DISORDER [None]
